FAERS Safety Report 4761642-7 (Version None)
Quarter: 2005Q3

REPORT INFORMATION
  Report Type: 
  Country: None (occurrence: None)
  Receive Date: 20050906
  Receipt Date: 20050825
  Transmission Date: 20060218
  Serious: Yes (Other)
  Sender: FDA-Public Use
  Company Number: FR-SANOFI-SYNTHELABO-A02200502305

PATIENT
  Sex: Female

DRUGS (1)
  1. PLAVIX [Suspect]
     Indication: CORONARY ARTERY INSUFFICIENCY
     Dosage: UNK
     Route: 048

REACTIONS (2)
  - HAEMATURIA [None]
  - PROTHROMBIN LEVEL DECREASED [None]
